FAERS Safety Report 6965067-5 (Version None)
Quarter: 2010Q3

REPORT INFORMATION
  Report Type: 
  Country: None (occurrence: None)
  Receive Date: 20100903
  Receipt Date: 20100825
  Transmission Date: 20110219
  Serious: Yes (Hospitalization)
  Sender: FDA-Public Use
  Company Number: US-ASTRAZENECA-2010SE40014

PATIENT
  Sex: Female

DRUGS (3)
  1. ATACAND HCT [Suspect]
     Dosage: 32 MG AND 12.5 MG
     Route: 048
     Dates: end: 20100101
  2. ATACAND [Suspect]
     Route: 048
     Dates: start: 20100101
  3. TOPROL-XL [Suspect]
     Route: 048

REACTIONS (3)
  - ABDOMINAL DISCOMFORT [None]
  - ELECTROCARDIOGRAM ABNORMAL [None]
  - ELECTROLYTE IMBALANCE [None]
